FAERS Safety Report 5950202-8 (Version None)
Quarter: 2008Q4

REPORT INFORMATION
  Report Type: 
  Country: None (occurrence: None)
  Receive Date: 20081112
  Receipt Date: 20081107
  Transmission Date: 20090506
  Serious: Yes (Other)
  Sender: FDA-Public Use
  Company Number: A0755419A

PATIENT
  Sex: Male

DRUGS (14)
  1. ADVAIR DISKUS 100/50 [Suspect]
     Indication: CHRONIC OBSTRUCTIVE PULMONARY DISEASE
     Dosage: 1PUFF TWICE PER DAY
     Route: 055
     Dates: start: 20041001
  2. SPIRIVA [Concomitant]
  3. POTASSIUM CHLORIDE [Concomitant]
  4. NORTRIPTYLINE HCL [Concomitant]
  5. FLOMAX [Concomitant]
  6. SINGULAIR [Concomitant]
  7. ASPIRIN [Concomitant]
  8. CALCIUM WITH VITAMIN D [Concomitant]
  9. SENNA [Concomitant]
  10. FUROSEMIDE [Concomitant]
  11. TOPROL-XL [Concomitant]
  12. PRAVASTATIN [Concomitant]
  13. DILTIAZEM HCL [Concomitant]
  14. ATENOLOL [Concomitant]

REACTIONS (1)
  - BLADDER CANCER [None]
